FAERS Safety Report 8960595 (Version 1)
Quarter: 2012Q4

REPORT INFORMATION
  Report Type: 
  Country: US (occurrence: US)
  Receive Date: 20121212
  Receipt Date: 20121212
  Transmission Date: 20130627
  Serious: Yes (Other)
  Sender: FDA-Public Use
  Company Number: CHPA2012US024673

PATIENT
  Age: 72 Year
  Sex: Female

DRUGS (1)
  1. BENEFIBER W/ WHEAT DEXTRIN [Suspect]
     Indication: SUPPLEMENTATION THERAPY
     Dosage: 2 TSP, QD
     Route: 048

REACTIONS (3)
  - Colon cancer [Not Recovered/Not Resolved]
  - Therapeutic response unexpected [Unknown]
  - Underdose [Unknown]
